FAERS Safety Report 11352174 (Version 2)
Quarter: 2015Q3

REPORT INFORMATION
  Report Type: Spontaneous
  Country: US (occurrence: US)
  Receive Date: 20150807
  Receipt Date: 20150810
  Transmission Date: 20151125
  Serious: Yes (Other)
  Sender: FDA-Public Use
  Company Number: US-ASTRAZENECA-2015SE75961

PATIENT
  Age: 48 Year
  Sex: Female

DRUGS (13)
  1. IBRANCE [Suspect]
     Active Substance: PALBOCICLIB
     Dosage: 125 MG,DAILY FOR 21 DAYS THEN 1 WWK OOF.
     Route: 048
     Dates: start: 20150723
  2. ATIVAN [Concomitant]
     Active Substance: LORAZEPAM
     Indication: ANXIETY
     Route: 048
     Dates: start: 20131104
  3. FASLODEX [Suspect]
     Active Substance: FULVESTRANT
     Route: 030
     Dates: start: 201403, end: 201502
  4. LUPRON [Concomitant]
     Active Substance: LEUPROLIDE ACETATE
     Dosage: 3.75 MG OTHER MONTHLY
     Route: 030
     Dates: start: 20140321, end: 201502
  5. LASIX [Concomitant]
     Active Substance: FUROSEMIDE
     Indication: OEDEMA PERIPHERAL
     Dosage: 10, MG DAILY, PRN
  6. ARIMIDEX [Suspect]
     Active Substance: ANASTROZOLE
     Route: 048
     Dates: start: 201403, end: 201502
  7. NYSTATIN. [Concomitant]
     Active Substance: NYSTATIN
     Dosage: 100000 UNJT/ML
     Route: 048
     Dates: start: 20150126
  8. ZOFRAN [Concomitant]
     Active Substance: ONDANSETRON HYDROCHLORIDE
     Indication: NAUSEA
     Dosage: TAKE I TABLET EILERY 8 HOURS PRN
     Route: 048
     Dates: start: 20131018
  9. ZOMETA [Suspect]
     Active Substance: ZOLEDRONIC ACID
     Indication: BONE CANCER METASTATIC
     Route: 065
     Dates: start: 201403
  10. IBUPROFEN. [Concomitant]
     Active Substance: IBUPROFEN
     Dosage: 2 TABLETS EVETY 5 HOURS AND ONE TIME SHE TOOK THREE TABLETS
     Route: 048
     Dates: start: 20131016
  11. FEMARA [Concomitant]
     Active Substance: LETROZOLE
     Dosage: TAKE I TABLET ONCE DAILY. ((FEMARA))
     Route: 048
     Dates: start: 20150729
  12. PROCHLORPERAZINE. [Concomitant]
     Active Substance: PROCHLORPERAZINE
     Indication: NAUSEA
     Dosage: TAKE I TABLET EVERY 4 TO 6 HOURS AS NEEDED
     Route: 048
     Dates: start: 20131018
  13. OXYCODONE HCL [Concomitant]
     Active Substance: OXYCODONE HYDROCHLORIDE
     Indication: PAIN
     Dosage: TAKE L TO 2 TABLETS BVBRY 4 TO 6 HOURS AS NEEDED
     Route: 048
     Dates: start: 20131016

REACTIONS (5)
  - Invasive ductal breast carcinoma [Unknown]
  - Metastases to meninges [Unknown]
  - Malignant neoplasm progression [Unknown]
  - Metastases to eye [Unknown]
  - Metastases to central nervous system [Unknown]
